FAERS Safety Report 24660205 (Version 2)
Quarter: 2024Q4

REPORT INFORMATION
  Report Type: Spontaneous
  Country: US (occurrence: US)
  Receive Date: 20241125
  Receipt Date: 20241126
  Transmission Date: 20250115
  Serious: Yes (Other)
  Sender: PFIZER
  Company Number: US-PFIZER INC-202400307833

PATIENT
  Age: 65 Year
  Sex: Female

DRUGS (4)
  1. TUKYSA [Suspect]
     Active Substance: TUCATINIB
     Dosage: TWO 150MG TABLETS BY MOUTH TWICE DAILY
     Route: 048
     Dates: start: 20200609
  2. XELODA [Suspect]
     Active Substance: CAPECITABINE
     Dosage: 1000 MG
     Dates: start: 20200609
  3. XELODA [Suspect]
     Active Substance: CAPECITABINE
     Dosage: 500 MG
     Dates: end: 20210126
  4. HERCEPTIN [Suspect]
     Active Substance: TRASTUZUMAB
     Dosage: UNK
     Dates: start: 20200609

REACTIONS (2)
  - Ejection fraction decreased [Unknown]
  - Neoplasm progression [Not Recovered/Not Resolved]

NARRATIVE: CASE EVENT DATE: 20211101
